FAERS Safety Report 5923614-6 (Version None)
Quarter: 2008Q4

REPORT INFORMATION
  Report Type: 
  Country: None (occurrence: None)
  Receive Date: 20081015
  Receipt Date: 20081001
  Transmission Date: 20090506
  Serious: Yes (Hospitalization)
  Sender: FDA-Public Use
  Company Number: PAR_02360_2008

PATIENT
  Age: 71 Year
  Sex: Female
  Weight: 68 kg

DRUGS (13)
  1. MINOXIDIL [Suspect]
     Indication: HYPERTENSION
     Dosage: (1 DF BID)
  2. LANTUS [Suspect]
     Indication: TYPE 2 DIABETES MELLITUS
     Dosage: (45 IU QD SUBCUTANEOUS
     Route: 058
     Dates: end: 20080801
  3. LANTUS [Suspect]
     Indication: TYPE 2 DIABETES MELLITUS
     Dosage: (8 IU QD SUBCUTANEOUS)
     Route: 058
  4. OPTICLIK [Suspect]
     Indication: TYPE 2 DIABETES MELLITUS
     Dosage: (DF)
  5. FUROSEMIDE [Concomitant]
  6. VASOTEC [Concomitant]
  7. DIOVAN [Concomitant]
  8. COREG [Concomitant]
  9. ASPIRIN [Concomitant]
  10. NEXIUM [Concomitant]
  11. LIPITOR [Concomitant]
  12. POTASSIUM CHLORIDE [Concomitant]
  13. CATAPRES [Concomitant]

REACTIONS (6)
  - DIALYSIS [None]
  - DRUG DELIVERY SYSTEM MALFUNCTION [None]
  - DRUG DOSE OMISSION [None]
  - HYPERTENSION [None]
  - NAUSEA [None]
  - VOMITING [None]
